FAERS Safety Report 14112181 (Version 3)
Quarter: 2018Q2

REPORT INFORMATION
  Report Type: Report from Study
  Country: US (occurrence: AR)
  Receive Date: 20171020
  Receipt Date: 20180604
  Transmission Date: 20180711
  Serious: Yes (Hospitalization, Disabling, Other)
  Sender: FDA-Public Use
  Company Number: US-SUNOVION-2017SUN004543

PATIENT
  Age: 76 Year
  Sex: Female

DRUGS (8)
  1. GLYCOPYRROLATE. [Suspect]
     Active Substance: GLYCOPYRROLATE
     Indication: ASTHMA
     Dosage: 50 ?G, UNK
     Route: 065
     Dates: start: 201409, end: 201503
  2. INDACATEROL [Suspect]
     Active Substance: INDACATEROL
     Indication: PRODUCT USED FOR UNKNOWN INDICATION
  3. SERETIDE [Concomitant]
     Active Substance: FLUTICASONE PROPIONATE\SALMETEROL XINAFOATE
     Dosage: UNKNOWN
  4. INDACATEROL AND GLYCOPYRROLATE [Suspect]
     Active Substance: GLYCOPYRROLATE\INDACATEROL MALEATE
     Indication: PRODUCT USED FOR UNKNOWN INDICATION
     Dosage: UNK, UNK REGIMEN #1
     Route: 065
  5. NEXIUM [Concomitant]
     Active Substance: ESOMEPRAZOLE MAGNESIUM
     Dosage: UNKNOWN
  6. XOLAIR [Suspect]
     Active Substance: OMALIZUMAB
     Indication: ASTHMA
     Dosage: 150 MG, Q 4 WEEKS REGIMEN #1
     Route: 065
     Dates: start: 201507, end: 20170926
  7. XOLAIR [Suspect]
     Active Substance: OMALIZUMAB
     Dosage: REGIMEN #2
     Route: 065
     Dates: start: 20170814
  8. RELVAR [Concomitant]
     Active Substance: FLUTICASONE FUROATE\VILANTEROL TRIFENATATE
     Dosage: UNKNOWN

REACTIONS (13)
  - Small intestine carcinoma [Not Recovered/Not Resolved]
  - Respiratory disorder [Unknown]
  - Asthenia [Unknown]
  - Fatigue [Recovering/Resolving]
  - Chronic obstructive pulmonary disease [Recovering/Resolving]
  - Nosocomial infection [Recovering/Resolving]
  - Anaemia [Recovering/Resolving]
  - Pneumonia [Not Recovered/Not Resolved]
  - Fall [Unknown]
  - Spinal column injury [Unknown]
  - Product use in unapproved indication [Unknown]
  - Pneumonia [Recovered/Resolved]
  - Pleural effusion [Recovered/Resolved]

NARRATIVE: CASE EVENT DATE: 201707
